FAERS Safety Report 10255799 (Version 2)
Quarter: 2014Q4

REPORT INFORMATION
  Report Type: Spontaneous
  Country: SE (occurrence: SE)
  Receive Date: 20140624
  Receipt Date: 20141218
  Transmission Date: 20150528
  Serious: Yes (Hospitalization)
  Sender: FDA-Public Use
  Company Number: SE-ASTRAZENECA-2014SE45102

PATIENT
  Age: 47 Year
  Sex: Female

DRUGS (12)
  1. ZOPICLONE [Suspect]
     Active Substance: ZOPICLONE
     Dosage: 4-5 DAILY DOSES OF SPLIT DOSES, 300 MG UNKNOWN
     Route: 065
  2. DUROFERON [Suspect]
     Active Substance: FERROUS SULFATE\FERROUS SULFATE, DRIED
     Route: 065
  3. SELOKEN [Suspect]
     Active Substance: METOPROLOL
     Route: 065
  4. QUETIAPINE [Suspect]
     Active Substance: QUETIAPINE
     Route: 048
  5. TOPAMAX [Suspect]
     Active Substance: TOPIRAMATE
     Route: 065
  6. SIMVASTATIN. [Suspect]
     Active Substance: SIMVASTATIN
     Route: 065
  7. LAMOTRIGINE. [Suspect]
     Active Substance: LAMOTRIGINE
     Route: 065
  8. LYRICA [Suspect]
     Active Substance: PREGABALIN
     Route: 065
  9. CLOMIPRAMINE [Suspect]
     Active Substance: CLOMIPRAMINE
     Route: 065
  10. LEVAXIN [Suspect]
     Active Substance: LEVOTHYROXINE SODIUM
     Route: 065
  11. XANOR [Suspect]
     Active Substance: ALPRAZOLAM
     Route: 065
  12. OLANZAPINE. [Suspect]
     Active Substance: OLANZAPINE
     Route: 065

REACTIONS (4)
  - Hypotonia [Unknown]
  - Depressed level of consciousness [Unknown]
  - Toxicity to various agents [Unknown]
  - Oxygen saturation decreased [Unknown]

NARRATIVE: CASE EVENT DATE: 20140427
